FAERS Safety Report 6640843-7 (Version None)
Quarter: 2010Q1

REPORT INFORMATION
  Report Type: 
  Country: None (occurrence: None)
  Receive Date: 20100318
  Receipt Date: 20100308
  Transmission Date: 20100710
  Serious: Yes (Other)
  Sender: FDA-Public Use
  Company Number: RO-PFIZER INC-2010031118

PATIENT
  Age: 22 Year
  Sex: Female

DRUGS (2)
  1. SALAZOPYRIN [Suspect]
     Indication: INTERVERTEBRAL DISCITIS
  2. CIPROFLOXACIN [Suspect]
     Indication: GENITAL INFECTION FEMALE

REACTIONS (1)
  - INFECTIOUS MONONUCLEOSIS [None]
